FAERS Safety Report 5278304-2 (Version None)
Quarter: 2007Q1

REPORT INFORMATION
  Report Type: 
  Country: None (occurrence: None)
  Receive Date: 20070322
  Receipt Date: 20070312
  Transmission Date: 20070707
  Serious: No
  Sender: FDA-Public Use
  Company Number: E2090-00195-SPO-DE

PATIENT
  Age: 44 Year
  Sex: Male

DRUGS (4)
  1. ZONEGRAN [Suspect]
     Indication: PARTIAL SEIZURES
     Dosage: SEE IMAGE
     Route: 048
     Dates: end: 20070301
  2. ZONEGRAN [Suspect]
     Indication: PARTIAL SEIZURES
     Dosage: SEE IMAGE
     Route: 048
     Dates: start: 20070301, end: 20070305
  3. ZONEGRAN [Suspect]
     Indication: PARTIAL SEIZURES
     Dosage: SEE IMAGE
     Route: 048
     Dates: start: 20070306
  4. CARBAMAZEPINE [Suspect]
     Dosage: 1200 MG, 2 IN 1 D, ORAL
     Route: 048
     Dates: start: 20061209

REACTIONS (10)
  - ASTHENIA [None]
  - DRUG INTERACTION [None]
  - DYSPHORIA [None]
  - MUSCULAR WEAKNESS [None]
  - PARESIS [None]
  - PHOTOPSIA [None]
  - SOMNOLENCE [None]
  - SPEECH DISORDER [None]
  - VERTIGO [None]
  - VISION BLURRED [None]
